FAERS Safety Report 9481874 (Version 1)
Quarter: 2013Q3

REPORT INFORMATION
  Report Type: Spontaneous
  Country: US (occurrence: US)
  Receive Date: 20130828
  Receipt Date: 20130828
  Transmission Date: 20140515
  Serious: Yes (Other)
  Sender: FDA-Public Use
  Company Number: US-RANBAXY-2013US-72319

PATIENT
  Sex: Female

DRUGS (1)
  1. FLUOXETINE [Suspect]
     Indication: MAJOR DEPRESSION
     Dosage: UNK
     Route: 065

REACTIONS (3)
  - Product substitution issue [Unknown]
  - Depression [Unknown]
  - Acne [Unknown]
